FAERS Safety Report 16931229 (Version 1)
Quarter: 2019Q4

REPORT INFORMATION
  Report Type: Spontaneous
  Country: US (occurrence: US)
  Receive Date: 20191017
  Receipt Date: 20191017
  Transmission Date: 20200122
  Serious: Yes (Other)
  Sender: FDA-Public Use
  Company Number: US-ARRAY-2019-06489

PATIENT

DRUGS (4)
  1. BRAFTOVI [Suspect]
     Active Substance: ENCORAFENIB
     Indication: MALIGNANT MELANOMA
     Dosage: UNK
  2. MEKTOVI [Suspect]
     Active Substance: BINIMETINIB
     Indication: MALIGNANT MELANOMA
     Dosage: UNK
     Route: 048
  3. MEKTOVI [Suspect]
     Active Substance: BINIMETINIB
     Dosage: 30 MG, BID
     Route: 048
  4. BRAFTOVI [Suspect]
     Active Substance: ENCORAFENIB
     Dosage: 75 MG, TID

REACTIONS (2)
  - Seizure [Unknown]
  - Off label use [Unknown]
